FAERS Safety Report 6955373-2 (Version None)
Quarter: 2010Q3

REPORT INFORMATION
  Report Type: 
  Country: None (occurrence: None)
  Receive Date: 20100830
  Receipt Date: 20091119
  Transmission Date: 20110219
  Serious: No
  Sender: FDA-Public Use
  Company Number: US-MYLANLABS-2009S1020040

PATIENT
  Age: 54 Year
  Sex: Female

DRUGS (4)
  1. THYROID TAB [Suspect]
     Indication: HYPOTHYROIDISM
     Route: 048
     Dates: start: 20070101, end: 20090901
  2. LISINOPRIL [Suspect]
     Indication: HYPERTENSION
     Dates: end: 20090101
  3. DIOVAN [Concomitant]
     Dates: start: 20090101
  4. PRILOSEC [Concomitant]
     Indication: HYPERTENSION

REACTIONS (9)
  - BURNING SENSATION [None]
  - EYELID IRRITATION [None]
  - EYELID PAIN [None]
  - EYELIDS PRURITUS [None]
  - LIP PAIN [None]
  - LIP SWELLING [None]
  - ORAL DISCOMFORT [None]
  - ORAL PAIN [None]
  - ORAL PRURITUS [None]
